FAERS Safety Report 16901303 (Version 3)
Quarter: 2019Q4

REPORT INFORMATION
  Report Type: Report from Study
  Country: CA (occurrence: CA)
  Receive Date: 20191009
  Receipt Date: 20191025
  Transmission Date: 20200122
  Serious: Yes (Hospitalization)
  Sender: FDA-Public Use
  Company Number: CA-BEH-2019107653

PATIENT
  Age: 80 Year
  Sex: Male

DRUGS (14)
  1. SYNTHROID [Concomitant]
     Active Substance: LEVOTHYROXINE SODIUM
  2. HYDROCHLOROTHIAZIDE. [Concomitant]
     Active Substance: HYDROCHLOROTHIAZIDE
  3. ASPIRIN BAYER [Concomitant]
     Active Substance: ASPIRIN
  4. PREDNISONE. [Concomitant]
     Active Substance: PREDNISONE
  5. VITAMIN D [VITAMIN D NOS] [Concomitant]
     Active Substance: VITAMIN D NOS
  6. FENO-MICRO [Concomitant]
  7. HIZENTRA [Suspect]
     Active Substance: HUMAN IMMUNOGLOBULIN G
     Dosage: 12 GRAM, TOT
     Route: 058
     Dates: start: 20190928, end: 20190928
  8. ROSUVASTATIN. [Concomitant]
     Active Substance: ROSUVASTATIN
  9. HIZENTRA [Suspect]
     Active Substance: HUMAN IMMUNOGLOBULIN G
     Indication: PRIMARY IMMUNODEFICIENCY SYNDROME
     Dosage: 12 GRAM, QW
     Route: 058
  10. VENTOLIN [Concomitant]
     Active Substance: ALBUTEROL SULFATE
  11. SENOKOT [Concomitant]
     Active Substance: SENNOSIDES
  12. MONTELUKAST [Concomitant]
     Active Substance: MONTELUKAST SODIUM
  13. HIZENTRA [Suspect]
     Active Substance: HUMAN IMMUNOGLOBULIN G
     Dosage: 12 GRAM, QW
     Route: 058
     Dates: start: 20190916, end: 20190916
  14. PREGABALIN. [Concomitant]
     Active Substance: PREGABALIN

REACTIONS (11)
  - Scratch [Recovered/Resolved]
  - Localised infection [Recovered/Resolved]
  - Limb discomfort [Recovered/Resolved]
  - Fluid replacement [Unknown]
  - Pain [Not Recovered/Not Resolved]
  - Obesity [Not Recovered/Not Resolved]
  - No adverse event [Unknown]
  - Product dose omission [Unknown]
  - Cellulitis [Recovered/Resolved]
  - Poor peripheral circulation [Recovering/Resolving]
  - Dyspnoea [Not Recovered/Not Resolved]

NARRATIVE: CASE EVENT DATE: 201909
